FAERS Safety Report 17829952 (Version 2)
Quarter: 2021Q1

REPORT INFORMATION
  Report Type: Spontaneous
  Country: FR (occurrence: FR)
  Receive Date: 20200527
  Receipt Date: 20210225
  Transmission Date: 20210419
  Serious: Yes (Hospitalization, Disabling, Other)
  Sender: FDA-Public Use
  Company Number: FR-MYLANLABS-2020M1051280

PATIENT
  Sex: Male

DRUGS (11)
  1. BENSERAZIDE/LEVODOPA [Suspect]
     Active Substance: BENSERAZIDE\LEVODOPA
     Indication: DOPAMINERGIC DRUG THERAPY
     Dosage: UNK
     Route: 065
     Dates: start: 201202
  2. SERTRALINE [Concomitant]
     Active Substance: SERTRALINE HYDROCHLORIDE
     Indication: DEPRESSION
     Dosage: 2 DOSAGE FORM
     Route: 065
     Dates: start: 201609
  3. PRAMIPEXOLE. [Suspect]
     Active Substance: PRAMIPEXOLE
     Indication: PARKINSON^S DISEASE
     Dosage: DOSAGE BETWEEN 1.4 AND 2.1 MG
     Route: 065
     Dates: start: 200702, end: 201411
  4. BENSERAZIDE/LEVODOPA [Suspect]
     Active Substance: BENSERAZIDE\LEVODOPA
     Indication: PARKINSON^S DISEASE
  5. NALTREXONE [Suspect]
     Active Substance: NALTREXONE
     Dosage: 50 MILLIGRAM, QD
     Dates: start: 201802, end: 20190225
  6. NALTREXONE [Suspect]
     Active Substance: NALTREXONE
     Indication: HYPERSEXUALITY
     Dosage: 50 MILLIGRAM, QD
     Dates: start: 201609, end: 201802
  7. RASAGILINE. [Suspect]
     Active Substance: RASAGILINE
     Indication: PARKINSON^S DISEASE
     Dosage: UNK
     Dates: start: 2010, end: 2012
  8. RASAGILINE. [Suspect]
     Active Substance: RASAGILINE
     Dosage: UNK
     Dates: start: 201701, end: 201703
  9. NALTREXONE [Suspect]
     Active Substance: NALTREXONE
     Dosage: 50 MILLIGRAM, QD
     Dates: start: 201903
  10. SERTRALINE [Concomitant]
     Active Substance: SERTRALINE HYDROCHLORIDE
     Dosage: 1 DOSAGE FORM
     Route: 065
     Dates: end: 201609
  11. RASAGILINE. [Suspect]
     Active Substance: RASAGILINE
     Dosage: UNK
     Dates: start: 201503, end: 2016

REACTIONS (11)
  - Compulsive sexual behaviour [Recovered/Resolved]
  - Libido increased [Recovered/Resolved]
  - Excessive masturbation [Recovered/Resolved]
  - Dependence [Recovered/Resolved]
  - Hypersexuality [Recovering/Resolving]
  - Sexual activity increased [Recovered/Resolved]
  - Agitation [Recovered/Resolved]
  - Irritability [Recovered/Resolved]
  - Impulse-control disorder [Recovering/Resolving]
  - Tension [Recovered/Resolved]
  - Off label use [Unknown]

NARRATIVE: CASE EVENT DATE: 201401
